FAERS Safety Report 9713994 (Version 2)
Quarter: 2015Q3

REPORT INFORMATION
  Report Type: Spontaneous
  Country: US (occurrence: US)
  Receive Date: 20131126
  Receipt Date: 20150803
  Transmission Date: 20151125
  Serious: No
  Sender: FDA-Public Use
  Company Number: US-GILEAD-2008-0018480

PATIENT
  Age: 83 Year
  Sex: Female
  Weight: 79.38 kg

DRUGS (13)
  1. POTASSIUM CHLORIDE. [Concomitant]
     Active Substance: POTASSIUM CHLORIDE
  2. PLAVIX [Concomitant]
     Active Substance: CLOPIDOGREL BISULFATE
  3. TYLENOL E-STRENGTH [Concomitant]
  4. NEURONTIN [Concomitant]
     Active Substance: GABAPENTIN
  5. METFORMIN [Concomitant]
     Active Substance: METFORMIN HYDROCHLORIDE
  6. LETAIRIS [Suspect]
     Active Substance: AMBRISENTAN
     Indication: PULMONARY ARTERIAL HYPERTENSION
     Route: 048
     Dates: start: 20080221
  7. JANUVIA [Concomitant]
     Active Substance: SITAGLIPTIN PHOSPHATE
  8. ASPIRIN EC [Concomitant]
     Active Substance: ASPIRIN
  9. DEMADEX [Concomitant]
     Active Substance: TORSEMIDE
  10. RANEXA [Concomitant]
     Active Substance: RANOLAZINE
  11. COREG [Concomitant]
     Active Substance: CARVEDILOL
  12. AVAPRO [Concomitant]
     Active Substance: IRBESARTAN
  13. GLUCOSAMINE [Concomitant]
     Active Substance: GLUCOSAMINE

REACTIONS (2)
  - Drug hypersensitivity [None]
  - Adverse event [None]
